FAERS Safety Report 5859240-7 (Version None)
Quarter: 2008Q3

REPORT INFORMATION
  Report Type: 
  Country: None (occurrence: None)
  Receive Date: 20080826
  Receipt Date: 20080826
  Transmission Date: 20090109
  Serious: Yes (Hospitalization)
  Sender: FDA-Public Use
  Company Number: None

PATIENT
  Age: 67 Year
  Sex: Male
  Weight: 171.4597 kg

DRUGS (2)
  1. LOVENOX [Suspect]
     Indication: DRUG LEVEL BELOW THERAPEUTIC
     Dosage: 160 TWICE DAILY SQ
     Route: 058
     Dates: start: 20080812, end: 20080818
  2. WARFARIN SODIUM [Suspect]
     Indication: ATRIAL FIBRILLATION
     Dosage: 7.5 DAILY PO
     Route: 048
     Dates: start: 20080808, end: 20080818

REACTIONS (3)
  - ANAEMIA [None]
  - ARTERIAL HAEMORRHAGE [None]
  - VASCULAR PSEUDOANEURYSM [None]
